FAERS Safety Report 6646021-X (Version None)
Quarter: 2010Q1

REPORT INFORMATION
  Report Type: 
  Country: None (occurrence: None)
  Receive Date: 20100323
  Receipt Date: 20100315
  Transmission Date: 20100710
  Serious: Yes (Other)
  Sender: FDA-Public Use
  Company Number: DE-PFIZER INC-2010032958

PATIENT
  Age: 88 Year
  Sex: Female

DRUGS (7)
  1. DETRUSITOL [Suspect]
     Indication: URINARY INCONTINENCE
     Dosage: 2 MG IN THE MORNING AND 2MG IN THE EVENING
     Dates: start: 20100308
  2. PANTOPRAZOLE [Concomitant]
     Indication: PROPHYLAXIS AGAINST GASTROINTESTINAL ULCER
  3. COLECALCIFEROL [Concomitant]
  4. DIDRONEL-KIT ^HOECHST^ [Concomitant]
     Indication: OSTEOPOROSIS
  5. DURAGESIC-100 [Concomitant]
     Indication: BACK PAIN
     Route: 061
  6. GINSENG [Concomitant]
  7. GINGIUM [Concomitant]

REACTIONS (4)
  - DISORIENTATION [None]
  - INSOMNIA [None]
  - SOMNOLENCE [None]
  - URINARY TRACT INFECTION [None]
